FAERS Safety Report 20072420 (Version 1)
Quarter: 2021Q4

REPORT INFORMATION
  Report Type: Spontaneous
  Country: RO (occurrence: RO)
  Receive Date: 20211116
  Receipt Date: 20211116
  Transmission Date: 20220303
  Serious: Yes (Other)
  Sender: FDA-Public Use
  Company Number: RO-RECORDATI-2021004441

PATIENT
  Age: 46 Year
  Sex: Male

DRUGS (5)
  1. METOPROLOL [Suspect]
     Active Substance: METOPROLOL
     Indication: Hypertension
     Dosage: 50 MILLIGRAM, ONCE A DAY (50 MILLIGRAM, QD)
     Route: 065
     Dates: start: 2013
  2. PENTAERYTHRITOL TETRANITRATE [Suspect]
     Active Substance: PENTAERYTHRITOL TETRANITRATE
     Indication: Hypertension
     Dosage: 2.6 MILLIGRAM, ONCE A DAY (2.6 MILLIGRAM, QD (1-0-0))
     Route: 065
     Dates: start: 2013
  3. INDAPAMIDE [Suspect]
     Active Substance: INDAPAMIDE
     Indication: Hypertension
     Dosage: 2.5 MILLIGRAM, ONCE A DAY (2.5 MILLIGRAM, QD (0-0-1))
     Route: 065
     Dates: start: 2013
  4. TRIMETAZIDINE [Suspect]
     Active Substance: TRIMETAZIDINE
     Indication: Hypertension
     Dosage: 20 MILLIGRAM, ONCE A DAY ()20 MILLIGRAM, QD (0-1-0)
     Route: 065
     Dates: start: 2013
  5. PERINDOPRIL [Suspect]
     Active Substance: PERINDOPRIL
     Indication: Hypertension
     Dosage: 10 MILLIGRAM, ONCE A DAY (10 MILLIGRAM, QD (0-0-1))
     Route: 065
     Dates: start: 2013

REACTIONS (5)
  - Therapy non-responder [Unknown]
  - Cerebrovascular accident [Unknown]
  - Pericarditis [Unknown]
  - Nephrolithiasis [Unknown]
  - Nervous system disorder [Recovered/Resolved]

NARRATIVE: CASE EVENT DATE: 20150101
